FAERS Safety Report 4713144-1 (Version None)
Quarter: 2005Q3

REPORT INFORMATION
  Report Type: 
  Country: None (occurrence: None)
  Receive Date: 20050712
  Receipt Date: 20050712
  Transmission Date: 20060218
  Serious: Yes (Other)
  Sender: FDA-Public Use
  Company Number: None

PATIENT
  Age: 56 Year
  Sex: Female
  Weight: 74.8435 kg

DRUGS (1)
  1. FENTANYL [Suspect]
     Dosage: 25 MCG Q 72
     Dates: start: 20050505

REACTIONS (4)
  - DRUG EFFECT DECREASED [None]
  - DRUG WITHDRAWAL SYNDROME [None]
  - PAIN [None]
  - PHARMACEUTICAL PRODUCT COMPLAINT [None]
